FAERS Safety Report 12724715 (Version 2)
Quarter: 2016Q4

REPORT INFORMATION
  Report Type: Spontaneous
  Country: CZ (occurrence: CZ)
  Receive Date: 20160908
  Receipt Date: 20161006
  Transmission Date: 20170207
  Serious: Yes (Other)
  Sender: FDA-Public Use
  Company Number: CZ-PFIZER INC-2016418046

PATIENT
  Age: 52 Year
  Sex: Male

DRUGS (1)
  1. PIPERACILLIN/TAZOBACTAM [Suspect]
     Active Substance: PIPERACILLIN SODIUM\TAZOBACTAM SODIUM
     Indication: ANTIBIOTIC THERAPY
     Dosage: 4.5 MG, 3X/DAY, EVERY 8 HOURS
     Dates: start: 20160821, end: 20160830

REACTIONS (12)
  - Bacterial test positive [None]
  - Lymphadenopathy mediastinal [None]
  - Pneumonia bacterial [None]
  - Dyspnoea [Recovered/Resolved]
  - Pulmonary mass [None]
  - Staphylococcus test positive [None]
  - Pyoderma [Recovered/Resolved]
  - Klebsiella test positive [None]
  - Pyrexia [Recovered/Resolved]
  - Lung infiltration [None]
  - Fatigue [Recovered/Resolved]
  - Candida test positive [None]

NARRATIVE: CASE EVENT DATE: 20160830
